FAERS Safety Report 18851311 (Version 1)
Quarter: 2021Q1

REPORT INFORMATION
  Report Type: Spontaneous
  Country: NL (occurrence: NL)
  Receive Date: 20210205
  Receipt Date: 20210205
  Transmission Date: 20210420
  Serious: Yes (Other)
  Sender: FDA-Public Use
  Company Number: NL-TEVA-2021-NL-1876113

PATIENT
  Age: 58 Year
  Sex: Male

DRUGS (8)
  1. TIOTROPIUM/OLODATEROL VERNEVELVLST 2,5/2,5UG/DO / SPIOLTO RESPIMAT INH [Concomitant]
     Active Substance: OLODATEROL\TIOTROPIUM
     Dosage: 2 DOSAGE FORMS DAILY; 1 DD2, SPRAY , THERAPY END DATE : ASKU
     Dates: start: 20150810
  2. OXYCODON TABLET MGA  10MG / BRAND NAME NOT SPECIFIED [Concomitant]
     Active Substance: OXYCODONE
     Dosage: 45 MILLIGRAM DAILY; OXYCODON TABLET MGA  15MG / BRAND NAME NOT SPECIFIED, 3 DD 1, THERAPY END DATE :
     Dates: start: 20200821
  3. METFORMINE TABLET MGA 1000MG / BRAND NAME NOT SPECIFIED [Concomitant]
     Active Substance: METFORMIN HYDROCHLORIDE
     Dosage: 2000 MILLIGRAM DAILY; 2 DD 1, THERAPY END DATE : ASKU
     Dates: start: 20160810
  4. SALBUTAMOL/IPRATROPIUM VERNEVELVLST 1/0,2MG/ML / IPRAMOL STERI?NEB VER [Suspect]
     Active Substance: ALBUTEROL\IPRATROPIUM
     Indication: PRODUCT USED FOR UNKNOWN INDICATION
     Dosage: 1 DOSAGE FORMS DAILY; THERAPY END DATE : ASKU
     Route: 065
     Dates: start: 20201224
  5. SLOW K [Concomitant]
     Active Substance: POTASSIUM CHLORIDE
     Dosage: 1200 MILLIGRAM DAILY; 2 DD 1, THERAPY END DATE : ASKU
     Dates: start: 20200309
  6. PANTOPRAZOL TABLET MSR 40MG / BRAND NAME NOT SPECIFIED [Concomitant]
     Active Substance: PANTOPRAZOLE
     Dosage: 80 MILLIGRAM DAILY; 2  DD1, THERAPY END DATE : ASKU
     Dates: start: 20161024
  7. OXYCODON TABLET MGA  10MG / BRAND NAME NOT SPECIFIED [Concomitant]
     Active Substance: OXYCODONE
     Dosage: 10 MILLIGRAM DAILY; THERAPY END DATE : ASKU
     Dates: start: 20201207
  8. XARELTO [Concomitant]
     Active Substance: RIVAROXABAN
     Dosage: 20 MILLIGRAM DAILY; THERAPY END DATE : ASKU
     Dates: start: 20190528

REACTIONS (1)
  - Sudden onset of sleep [Not Recovered/Not Resolved]

NARRATIVE: CASE EVENT DATE: 20201124
